FAERS Safety Report 17035785 (Version 1)
Quarter: 2019Q4

REPORT INFORMATION
  Report Type: Spontaneous
  Country: US (occurrence: US)
  Receive Date: 20191114
  Receipt Date: 20191114
  Transmission Date: 20200122
  Serious: Yes (Other)
  Sender: FDA-Public Use
  Company Number: None

PATIENT
  Age: 59 Year
  Sex: Male
  Weight: 86.4 kg

DRUGS (1)
  1. BOTOX [Suspect]
     Active Substance: ONABOTULINUMTOXINA
     Indication: MIGRAINE
     Dates: start: 20190501, end: 20190812

REACTIONS (3)
  - Vision blurred [None]
  - Drug ineffective [None]
  - Eyelid ptosis [None]

NARRATIVE: CASE EVENT DATE: 20190812
